FAERS Safety Report 17765294 (Version 1)
Quarter: 2020Q2

REPORT INFORMATION
  Report Type: Spontaneous
  Country: US (occurrence: US)
  Receive Date: 20200511
  Receipt Date: 20200511
  Transmission Date: 20200714
  Serious: No
  Sender: FDA-Public Use
  Company Number: US-PFIZER INC-2020187122

PATIENT
  Age: 41 Year
  Sex: Female

DRUGS (2)
  1. IBRANCE [Suspect]
     Active Substance: PALBOCICLIB
     Dosage: 100 MG, CYCLIC (AKE 1 CAPSULE BY MOUTH EVERY MORNING WITH BREAKFAST; CYCLE 21 DAYS, 7 DAYS OFF.)
     Route: 048
     Dates: start: 20200317
  2. IBRANCE [Suspect]
     Active Substance: PALBOCICLIB
     Dosage: 125 MG

REACTIONS (5)
  - Fatigue [Unknown]
  - Chills [Unknown]
  - Alopecia [Unknown]
  - Decreased appetite [Unknown]
  - Blood count abnormal [Unknown]
